FAERS Safety Report 6427571-8 (Version None)
Quarter: 2009Q4

REPORT INFORMATION
  Report Type: 
  Country: None (occurrence: None)
  Receive Date: 20091104
  Receipt Date: 20091028
  Transmission Date: 20100525
  Serious: Yes (Hospitalization)
  Sender: FDA-Public Use
  Company Number: US-ABBOTT-09P-163-0605456-00

PATIENT
  Sex: Female
  Weight: 43.584 kg

DRUGS (12)
  1. DEPAKOTE ER [Suspect]
     Indication: FOETAL ALCOHOL SYNDROME
     Dates: start: 20020101
  2. DEPAKOTE ER [Suspect]
     Indication: ATTENTION DEFICIT/HYPERACTIVITY DISORDER
     Dates: start: 20080101, end: 20090722
  3. DEPAKOTE ER [Suspect]
     Indication: BIPOLAR DISORDER
     Dates: start: 20091009
  4. DEPAKOTE ER [Suspect]
     Indication: ANXIETY
  5. DEPAKOTE ER [Suspect]
     Indication: AFFECTIVE DISORDER
  6. RISPERDAL [Concomitant]
     Indication: INSOMNIA
     Dates: start: 20020101, end: 20020101
  7. RISPERDAL [Concomitant]
     Indication: AGITATION
  8. DIVALPROEX SODIUM [Concomitant]
     Indication: FOETAL ALCOHOL SYNDROME
     Dates: start: 20090723, end: 20091008
  9. DIVALPROEX SODIUM [Concomitant]
     Indication: ATTENTION DEFICIT/HYPERACTIVITY DISORDER
  10. DIVALPROEX SODIUM [Concomitant]
     Indication: BIPOLAR DISORDER
  11. DIVALPROEX SODIUM [Concomitant]
     Indication: ANXIETY
  12. DIVALPROEX SODIUM [Concomitant]
     Indication: AFFECTIVE DISORDER

REACTIONS (5)
  - ANTICONVULSANT DRUG LEVEL DECREASED [None]
  - FRUSTRATION [None]
  - INTENTIONAL SELF-INJURY [None]
  - PERSONALITY CHANGE [None]
  - SUICIDAL BEHAVIOUR [None]
